FAERS Safety Report 12244210 (Version 1)
Quarter: 2016Q2

REPORT INFORMATION
  Report Type: Spontaneous
  Country: NO (occurrence: NO)
  Receive Date: 20160407
  Receipt Date: 20160407
  Transmission Date: 20160815
  Serious: Yes (Disabling)
  Sender: FDA-Public Use
  Company Number: NO-ROCHE-1736008

PATIENT
  Age: 57 Year
  Sex: Male

DRUGS (2)
  1. MABTHERA [Suspect]
     Active Substance: RITUXIMAB
     Indication: LYMPHOPLASMACYTOID LYMPHOMA/IMMUNOCYTOMA
     Dosage: A TOTAL OF 6 THERAPY COURSES
     Route: 042
     Dates: start: 201107, end: 201111
  2. LEVACT (NORWAY) [Suspect]
     Active Substance: BENDAMUSTINE HYDROCHLORIDE
     Indication: LYMPHOPLASMACYTOID LYMPHOMA/IMMUNOCYTOMA
     Dosage: A TOTAL OF 6 THERAPY COURSES
     Route: 042
     Dates: start: 201107, end: 201111

REACTIONS (2)
  - Emphysema [Not Recovered/Not Resolved]
  - Spirometry abnormal [Not Recovered/Not Resolved]

NARRATIVE: CASE EVENT DATE: 201409
